FAERS Safety Report 16679717 (Version 1)
Quarter: 2019Q3

REPORT INFORMATION
  Report Type: Spontaneous
  Country: US (occurrence: US)
  Receive Date: 20190807
  Receipt Date: 20190807
  Transmission Date: 20191004
  Serious: No
  Sender: FDA-Public Use
  Company Number: US-B.I. PHARMACEUTICALS,INC./RIDGEFIELD-2019-US-001067

PATIENT
  Age: 70 Year
  Sex: Female

DRUGS (1)
  1. SYNJARDY [Suspect]
     Active Substance: EMPAGLIFLOZIN\METFORMIN HYDROCHLORIDE
     Indication: PRODUCT USED FOR UNKNOWN INDICATION
     Dosage: 12.5 MG/1000 MG AS DIRECTED
     Route: 065

REACTIONS (2)
  - Hordeolum [Not Recovered/Not Resolved]
  - Dacryostenosis acquired [Not Recovered/Not Resolved]

NARRATIVE: CASE EVENT DATE: 20190731
